FAERS Safety Report 21504262 (Version 1)
Quarter: 2022Q4

REPORT INFORMATION
  Report Type: Report from Study
  Country: TH (occurrence: TH)
  Receive Date: 20221025
  Receipt Date: 20221025
  Transmission Date: 20230112
  Serious: Yes (Hospitalization, Other)
  Sender: FDA-Public Use
  Company Number: TH-JNJFOC-20220257359

PATIENT
  Age: 80 Year
  Sex: Male

DRUGS (2)
  1. BORTEZOMIB [Suspect]
     Active Substance: BORTEZOMIB
     Indication: Plasma cell myeloma
     Dosage: 2 MILLIGRAM
     Route: 058
     Dates: start: 20220118
  2. DARZALEX [Suspect]
     Active Substance: DARATUMUMAB
     Indication: Plasma cell myeloma
     Dosage: 900 MILLIGRAM
     Route: 041
     Dates: start: 20220118

REACTIONS (2)
  - Sepsis [Recovered/Resolved]
  - Intestinal barrier dysfunction [Not Recovered/Not Resolved]

NARRATIVE: CASE EVENT DATE: 20220224
